FAERS Safety Report 4826361-7 (Version None)
Quarter: 2005Q4

REPORT INFORMATION
  Report Type: 
  Country: None (occurrence: None)
  Receive Date: 20051109
  Receipt Date: 20051024
  Transmission Date: 20060501
  Serious: Yes (Hospitalization)
  Sender: FDA-Public Use
  Company Number: 2005-BP-18724RO

PATIENT
  Age: 57 Year
  Sex: Female
  Weight: 74.4 kg

DRUGS (1)
  1. PREDNISONE TAB [Suspect]
     Indication: PNEUMONIA
     Dosage: 160 OR 180 MG/DAY (NR), PO
     Route: 048

REACTIONS (1)
  - ARTERIAL THROMBOSIS LIMB [None]
